FAERS Safety Report 10585081 (Version 1)
Quarter: 2014Q4

REPORT INFORMATION
  Report Type: Spontaneous
  Country: US (occurrence: None)
  Receive Date: 20141113
  Receipt Date: 20141113
  Transmission Date: 20150529
  Serious: Yes (Life-Threatening, Hospitalization, Other)
  Sender: FDA-Public Use
  Company Number: US2014GSK010116

PATIENT
  Age: 48 Year
  Sex: Male

DRUGS (3)
  1. EFAVIRENZ [Concomitant]
     Active Substance: EFAVIRENZ
  2. COMBIVIR [Suspect]
     Active Substance: LAMIVUDINE\ZIDOVUDINE
     Indication: HIV INFECTION
     Dosage: 1 DF, BID, ORAL
     Route: 048
     Dates: start: 201002, end: 20141004
  3. CALCIUM [Concomitant]
     Active Substance: CALCIUM

REACTIONS (5)
  - Drug interaction [None]
  - Adverse drug reaction [None]
  - Hospitalisation [None]
  - Drug administration error [None]
  - Drug ineffective [None]

NARRATIVE: CASE EVENT DATE: 20140930
